FAERS Safety Report 21056298 (Version 2)
Quarter: 2022Q3

REPORT INFORMATION
  Report Type: Spontaneous
  Country: IT (occurrence: IT)
  Receive Date: 20220708
  Receipt Date: 20220815
  Transmission Date: 20221027
  Serious: Yes (Death, Life-Threatening, Other)
  Sender: FDA-Public Use
  Company Number: IT-AMGEN-ITASP2020127419

PATIENT

DRUGS (1)
  1. CARFILZOMIB [Suspect]
     Active Substance: CARFILZOMIB
     Indication: Plasma cell myeloma
     Dosage: UNK
     Route: 065

REACTIONS (25)
  - Death [Fatal]
  - Neutropenia [Unknown]
  - Anaemia [Unknown]
  - Gastrointestinal toxicity [Unknown]
  - Infusion related reaction [Unknown]
  - Asthenia [Unknown]
  - Plasma cell myeloma recurrent [Unknown]
  - Deep vein thrombosis [Unknown]
  - Musculoskeletal toxicity [Unknown]
  - Embolism [Unknown]
  - Lymphopenia [Unknown]
  - Thrombosis [Unknown]
  - Thrombocytopenia [Unknown]
  - Neuropathy peripheral [Unknown]
  - Renal failure [Unknown]
  - Therapy non-responder [Unknown]
  - Therapy partial responder [Unknown]
  - Toxicity to various agents [Unknown]
  - Rash [Unknown]
  - Constipation [Unknown]
  - Pyrexia [Unknown]
  - Haematotoxicity [Unknown]
  - Infection [Unknown]
  - Diarrhoea [Unknown]
  - Fatigue [Unknown]
